FAERS Safety Report 13389238 (Version 1)
Quarter: 2017Q1

REPORT INFORMATION
  Report Type: Report from Study
  Country: PL (occurrence: PL)
  Receive Date: 20170330
  Receipt Date: 20170330
  Transmission Date: 20170429
  Serious: Yes (Other)
  Sender: FDA-Public Use
  Company Number: PL-ASTELLAS-2016US048467

PATIENT
  Sex: Female

DRUGS (2)
  1. TACROLIMUS. [Suspect]
     Active Substance: TACROLIMUS
     Dosage: 0.03 %, TWICE WEEKLY
     Route: 061
     Dates: start: 2003
  2. TACROLIMUS. [Suspect]
     Active Substance: TACROLIMUS
     Indication: DERMATITIS ATOPIC
     Dosage: 0.03 %, UNKNOWN FREQ.
     Route: 061
     Dates: start: 2002

REACTIONS (1)
  - Hyperthyroidism [Unknown]
